FAERS Safety Report 21123919 (Version 3)
Quarter: 2023Q2

REPORT INFORMATION
  Report Type: Spontaneous
  Country: PK (occurrence: PK)
  Receive Date: 20220725
  Receipt Date: 20230622
  Transmission Date: 20230722
  Serious: Yes (Other)
  Sender: FDA-Public Use
  Company Number: PK-PFIZER INC-202200004578

PATIENT
  Age: 73 Year
  Sex: Female

DRUGS (19)
  1. ENBREL [Suspect]
     Active Substance: ETANERCEPT
     Indication: Rheumatoid arthritis
     Dosage: 50 MG, WEEKLY
     Route: 058
     Dates: start: 20211203
  2. ENBREL [Suspect]
     Active Substance: ETANERCEPT
     Dosage: 50 MG, WEEKLY
     Route: 058
     Dates: start: 20211204, end: 202306
  3. DELTACORTRIL [Concomitant]
     Active Substance: PREDNISOLONE
     Dosage: 5MG 1-0-0-0 AFTER MEAL, 1 TABLET IN MORNING
  4. LEFLUNOMIDE [Concomitant]
     Active Substance: LEFLUNOMIDE
     Dosage: 1X TABLET, EVERY OTHER DAY, AFTER MEAL, CONTINUE
  5. FEMIDOL PLUS [CAFFEINE;CODEINE PHOSPHATE;PARACETAMOL] [Concomitant]
     Dosage: UNK, QD
  6. DICLOFENAC POTASSIUM [Concomitant]
     Active Substance: DICLOFENAC POTASSIUM
     Dosage: 50MG 0-0-1-0 AFTER MEAL
  7. CAC [Concomitant]
     Dosage: 1X TABLETS, ONCE A DAY CONTINUE
  8. SUNNY D [Concomitant]
     Dosage: 1 X CAPSULE ONCE A MONTH, AFTER MEAL, CONTINUE
  9. FOLIC ACID [Concomitant]
     Active Substance: FOLIC ACID
     Dosage: 5 MG TAB 1-0-0-0
  10. HYDROXYCHLOROQUINE SULFATE [Concomitant]
     Active Substance: HYDROXYCHLOROQUINE SULFATE
     Dosage: 200 MG, 0+0+1+0 , AFTER MEAL, 1 TABLET IN EVENING, AFTER MEAL
     Dates: start: 2019
  11. Risek [Concomitant]
     Dosage: 20 MG, 1 +0 + 1 +0, 1+1 CAP, IN MORNING AND EVENING, BEFORE MEAL
  12. CELBEXX [Concomitant]
     Dosage: 200 MG, 0 + 0 + 0 + 1, 1 CAP AT NIGHT, AFTER MEAL, AS PER NEED
  13. METHOTREXATE SODIUM [Concomitant]
     Active Substance: METHOTREXATE SODIUM
     Dosage: UNK
  14. COLCHICINE [Concomitant]
     Active Substance: COLCHICINE
     Dosage: 1 + 0 + 0 + 0  1 TAB IN MORNING FOR 2 WEEKS
  15. Gouric [Concomitant]
     Dosage: 40MG 1 + 0 + 0 + 0  1 TAB IN MORNING
  16. TERIPARATIDE [Concomitant]
     Active Substance: TERIPARATIDE
     Dosage: 1 X INJ. ONCE A DAY FOR 18 MONTHS
     Route: 058
  17. FAMOTID [Concomitant]
     Dosage: 40MG 1X TABLETS, ONCE A DAY, BEFORE MEAL
  18. ITOPRIDE [Concomitant]
     Active Substance: ITOPRIDE
     Dosage: 50 MG, 2X/DAY (1 + 0 + 0 + 1, BEFORE MEAL)
  19. SURBEX Z [Concomitant]
     Dosage: 1XTABLETS, ONCE A DAY 1 CONTINUE

REACTIONS (12)
  - Knee arthroplasty [Unknown]
  - Diabetes mellitus inadequate control [Unknown]
  - Fracture [Unknown]
  - Alopecia [Unknown]
  - Red blood cell sedimentation rate increased [Unknown]
  - Pain in extremity [Unknown]
  - Hyperuricaemia [Unknown]
  - Off label use [Unknown]
  - Arthralgia [Unknown]
  - Pain [Unknown]
  - Pyrexia [Unknown]
  - Infection [Unknown]

NARRATIVE: CASE EVENT DATE: 20220101
